FAERS Safety Report 5003903-2 (Version None)
Quarter: 2006Q2

REPORT INFORMATION
  Report Type: 
  Country: None (occurrence: None)
  Receive Date: 20060515
  Receipt Date: 20060503
  Transmission Date: 20061013
  Serious: Yes (Disabling)
  Sender: FDA-Public Use
  Company Number: GXKR2006SE02489

PATIENT
  Age: 78 Year
  Sex: Male

DRUGS (5)
  1. OMEPRAZOLE SANDOZ (NGX) (OMEPRAZOLE) UNKNOWN [Suspect]
  2. CAVERJECT [Concomitant]
  3. FELODIPINE [Concomitant]
  4. COZAAR [Concomitant]
  5. LEVOTHYROXINE SODIUM [Concomitant]

REACTIONS (1)
  - ALOPECIA [None]
